FAERS Safety Report 25787451 (Version 1)
Quarter: 2025Q3

REPORT INFORMATION
  Report Type: Spontaneous
  Country: EU (occurrence: EU)
  Receive Date: 20250910
  Receipt Date: 20250910
  Transmission Date: 20251020
  Serious: Yes (Other)
  Sender: MSN LABORATORIES PRIVATE LIMITED
  Company Number: EU-MSNLABS-2025MSNLIT00944

PATIENT

DRUGS (1)
  1. PREGABALIN [Suspect]
     Active Substance: PREGABALIN
     Indication: Multiple sclerosis
     Dosage: QD (ONCE A DAY)
     Route: 065

REACTIONS (2)
  - Epistaxis [Recovered/Resolved]
  - Haematoma [Recovered/Resolved]
